FAERS Safety Report 6770623-3 (Version None)
Quarter: 2010Q2

REPORT INFORMATION
  Report Type: 
  Country: None (occurrence: None)
  Receive Date: 20100615
  Receipt Date: 20100527
  Transmission Date: 20101027
  Serious: No
  Sender: FDA-Public Use
  Company Number: US-BAYER-201024804NA

PATIENT
  Age: 46 Year
  Sex: Female

DRUGS (2)
  1. ULTRAVIST 300 [Suspect]
     Indication: COMPUTERISED TOMOGRAM ABDOMEN
     Dosage: TOTAL DAILY DOSE: 88 ML  UNIT DOSE: 300 ML
     Route: 042
     Dates: start: 20100527, end: 20100527
  2. READI-CAT BARIUM [Concomitant]
     Route: 048
     Dates: start: 20100527, end: 20100527

REACTIONS (1)
  - PARAESTHESIA MUCOSAL [None]
